FAERS Safety Report 6822288-X (Version None)
Quarter: 2010Q3

REPORT INFORMATION
  Report Type: 
  Country: None (occurrence: None)
  Receive Date: 20100707
  Receipt Date: 20100707
  Transmission Date: 20110219
  Serious: Yes (Other)
  Sender: FDA-Public Use
  Company Number: None

PATIENT
  Sex: Female

DRUGS (1)
  1. MIRENA [Suspect]

REACTIONS (9)
  - BACK PAIN [None]
  - CONVULSION [None]
  - DRY SKIN [None]
  - HOT FLUSH [None]
  - HYPOAESTHESIA [None]
  - NAUSEA [None]
  - PALLOR [None]
  - PARAESTHESIA [None]
  - WEIGHT INCREASED [None]
